FAERS Safety Report 5431598-2 (Version None)
Quarter: 2007Q3

REPORT INFORMATION
  Report Type: 
  Country: None (occurrence: None)
  Receive Date: 20070830
  Receipt Date: 20070822
  Transmission Date: 20080115
  Serious: Yes (Congenital Anomaly, Other)
  Sender: FDA-Public Use
  Company Number: US-ELI_LILLY_AND_COMPANY-US200707000710

PATIENT
  Sex: Female
  Weight: 2.191 kg

DRUGS (3)
  1. CYMBALTA [Suspect]
     Dosage: UNK, UNK
     Route: 064
     Dates: start: 20060101, end: 20060101
  2. VITAMINS NOS [Concomitant]
     Route: 064
     Dates: end: 20070222
  3. PHENERGAN HCL [Concomitant]
     Route: 064
     Dates: end: 20070222

REACTIONS (4)
  - CONGENITAL PULMONARY VALVE ATRESIA [None]
  - DRUG EXPOSURE DURING PREGNANCY [None]
  - PREMATURE BABY [None]
  - SMALL FOR DATES BABY [None]
